FAERS Safety Report 21185046 (Version 1)
Quarter: 2022Q3

REPORT INFORMATION
  Report Type: Spontaneous
  Country: US (occurrence: None)
  Receive Date: 20220807
  Receipt Date: 20220807
  Transmission Date: 20221027
  Serious: Yes (Hospitalization, Other)
  Sender: FDA-Public Use
  Company Number: None

PATIENT
  Age: 36 Year
  Sex: Female
  Weight: 166.5 kg

DRUGS (1)
  1. SINGULAIR [Suspect]
     Active Substance: MONTELUKAST SODIUM
     Indication: Asthma

REACTIONS (9)
  - Influenza [None]
  - Panic disorder [None]
  - Near death experience [None]
  - Anxiety [None]
  - Sleep disorder [None]
  - Vision blurred [None]
  - Dyspepsia [None]
  - Abdominal discomfort [None]
  - Dysphagia [None]

NARRATIVE: CASE EVENT DATE: 20220730
